FAERS Safety Report 12890025 (Version 3)
Quarter: 2016Q4

REPORT INFORMATION
  Report Type: Spontaneous
  Country: IT (occurrence: IT)
  Receive Date: 20161027
  Receipt Date: 20161207
  Transmission Date: 20170207
  Serious: Yes (Other)
  Sender: FDA-Public Use
  Company Number: IT-TEVA-706405ACC

PATIENT
  Age: 80 Year
  Sex: Male
  Weight: 91 kg

DRUGS (5)
  1. CARDIOASPIRIN - 100 MG COMPRESSE GASTRORESISTENTI [Concomitant]
     Active Substance: ASPIRIN
     Indication: PRODUCT USED FOR UNKNOWN INDICATION
     Dosage: 1 DF
     Route: 048
     Dates: start: 20090909, end: 20160711
  2. MIRTAZAPINA DOC - DOC GENERICI SRL [Interacting]
     Active Substance: MIRTAZAPINE
     Indication: DECREASED APPETITE
     Dosage: .5 DOSAGE FORMS DAILY;
     Route: 048
     Dates: start: 20160404, end: 20160709
  3. CONGESCOR - 1.25 MG COMPRESSE [Interacting]
     Active Substance: BISOPROLOL FUMARATE
     Indication: CARDIAC FAILURE
     Dosage: 2 DOSAGE FORMS DAILY;
     Route: 048
     Dates: start: 20090930, end: 20160711
  4. PANTOPRAZOLE [Suspect]
     Active Substance: PANTOPRAZOLE SODIUM
     Indication: OESOPHAGITIS
     Dosage: 40 MILLIGRAM DAILY;
     Route: 048
     Dates: start: 20150909, end: 20160711
  5. FINASTERIDE. [Concomitant]
     Active Substance: FINASTERIDE
     Indication: BENIGN PROSTATIC HYPERPLASIA
     Route: 048
     Dates: start: 20090809, end: 20110711

REACTIONS (10)
  - Dry mouth [Recovering/Resolving]
  - Drug interaction [Unknown]
  - Posture abnormal [Unknown]
  - Dysstasia [Unknown]
  - Arthralgia [Recovering/Resolving]
  - Hyperhidrosis [Recovering/Resolving]
  - Somnolence [Recovering/Resolving]
  - Abnormal weight gain [Recovering/Resolving]
  - Hypotension [Recovering/Resolving]
  - Myalgia [Unknown]

NARRATIVE: CASE EVENT DATE: 20160621
